FAERS Safety Report 20955967 (Version 1)
Quarter: 2022Q2

REPORT INFORMATION
  Report Type: Spontaneous
  Country: US (occurrence: None)
  Receive Date: 20220614
  Receipt Date: 20220614
  Transmission Date: 20220721
  Serious: No
  Sender: FDA-Public Use
  Company Number: US-MDD US Operations-MDD202204-000839

PATIENT
  Age: 75 Year
  Sex: Male

DRUGS (4)
  1. APOKYN [Suspect]
     Active Substance: APOMORPHINE HYDROCHLORIDE
     Indication: Parkinson^s disease
     Dates: start: 20210208
  2. MYOBLOC [Suspect]
     Active Substance: RIMABOTULINUMTOXINB
     Indication: Torticollis
     Dosage: 2 INJECTIONS ON EACH SIDE OF HIS NECK (TOTAL OF 4 INJECTIONS)
     Dates: start: 202007
  3. CARBIDOPA\LEVODOPA [Concomitant]
     Active Substance: CARBIDOPA\LEVODOPA
  4. NEUPRO [Concomitant]
     Active Substance: ROTIGOTINE

REACTIONS (3)
  - Blood glucose increased [Unknown]
  - Therapeutic product effect delayed [Unknown]
  - Therapeutic product effect variable [Unknown]

NARRATIVE: CASE EVENT DATE: 20220401
